FAERS Safety Report 9261884 (Version 1)
Quarter: 2013Q2

REPORT INFORMATION
  Report Type: Spontaneous
  Country: US (occurrence: US)
  Receive Date: 20130429
  Receipt Date: 20130429
  Transmission Date: 20140414
  Serious: Yes (Other)
  Sender: FDA-Public Use
  Company Number: US-MERCK-1304USA016078

PATIENT
  Sex: Female

DRUGS (4)
  1. FOSAMAX [Suspect]
     Dosage: UNK
     Route: 048
     Dates: start: 2002, end: 201105
  2. ALENDRONATE SODIUM [Suspect]
     Dosage: UNK
     Dates: start: 2002, end: 201105
  3. BONIVA [Suspect]
     Dosage: UNK
     Dates: start: 2002, end: 201105
  4. IBANDRONATE SODIUM [Suspect]
     Dosage: UNK
     Dates: start: 2002, end: 201105

REACTIONS (1)
  - Femur fracture [Unknown]
